FAERS Safety Report 5720734-6 (Version None)
Quarter: 2008Q2

REPORT INFORMATION
  Report Type: 
  Country: None (occurrence: None)
  Receive Date: 20080424
  Receipt Date: 20080415
  Transmission Date: 20081010
  Serious: Yes (Hospitalization)
  Sender: FDA-Public Use
  Company Number: 163-20785-08020098

PATIENT
  Age: 70 Year
  Sex: Male
  Weight: 109.7 kg

DRUGS (17)
  1. THALOMID [Suspect]
     Indication: MULTIPLE MYELOMA
     Dosage: 200-100MG, ORAL; 50 MG, DAILY AT BEDTIME, ORAL
     Route: 048
     Dates: start: 20040914, end: 20080227
  2. DEXAMETHASONE TAB [Suspect]
     Indication: MULTIPLE MYELOMA
     Dosage: 40 MG,; 12 MG, DAYS 1-4 EVERY 21 DAYS, ORAL
     Route: 048
     Dates: start: 20061107, end: 20071115
  3. DEXAMETHASONE TAB [Suspect]
     Indication: MULTIPLE MYELOMA
     Dosage: 40 MG,; 12 MG, DAYS 1-4 EVERY 21 DAYS, ORAL
     Route: 048
     Dates: start: 20040915
  4. CENTRUM SILVER (CENTRUM SILVER) (TABLETS) [Concomitant]
  5. ATIVAN (LORAZEPAM) (1 MILLIGRAM, TABLETS) [Concomitant]
  6. ACYCLOVIR (ACICLOVIR) (CAPSULES) [Concomitant]
  7. MAGNESIUM (MAGNESIUM) (TABLETS) [Concomitant]
  8. POTASSIUM CHLORIDE (POTASSIUM CHLORIDE) (20 MILLIEQUIVALENTS) [Concomitant]
  9. METAMUCIL (METAMUCIL ^PROCTER + GAMBLE^) (CAPSULES) [Concomitant]
  10. DIGOXIN (DIGOXIN) (0.125 MILLIGRAM, TABLETS) [Concomitant]
  11. SENNA (SENNA) (8.6 MILLIGRAM, TABLETS) [Concomitant]
  12. METOPROLOL TARTRATE (METOPROLOL TARTRATE) (12.5 MILLIGRAM, TABLETS) [Concomitant]
  13. LANOXIN (DIGOXIN) (0.25 MILLIGRAM, TABLETS) [Concomitant]
  14. CYMBALTA (DULOXETINE HYDROCHLORIDE) (20 MILLIGRAM) [Concomitant]
  15. LOVENOX [Concomitant]
  16. TEQUIN (GATIFLOXACIN) (SOLUTION) [Concomitant]
  17. LANTUS (INSULIN GLARGINE) (SOLUTION) [Concomitant]

REACTIONS (4)
  - ACUTE RESPIRATORY FAILURE [None]
  - DISEASE PROGRESSION [None]
  - PNEUMONIA HAEMOPHILUS [None]
  - PNEUMONIA STREPTOCOCCAL [None]
